FAERS Safety Report 18191553 (Version 1)
Quarter: 2020Q3

REPORT INFORMATION
  Report Type: Report from Study
  Country: JP (occurrence: JP)
  Receive Date: 20200824
  Receipt Date: 20200824
  Transmission Date: 20201103
  Serious: Yes (Other)
  Sender: FDA-Public Use
  Company Number: JP-CELLTRION INC.-2020JP025688

PATIENT

DRUGS (4)
  1. CT?P13 [Suspect]
     Active Substance: INFLIXIMAB-DYYB
     Dosage: 335 MILLIGRAM (WEIGHT: 67KG)
     Route: 041
     Dates: start: 20190608, end: 20190608
  2. MESALAZINE [Concomitant]
     Active Substance: MESALAMINE
     Dosage: 4800 MILLIGRAM, DAILY
     Route: 048
     Dates: start: 20181007
  3. CT?P13 [Suspect]
     Active Substance: INFLIXIMAB-DYYB
     Indication: COLITIS ULCERATIVE
     Dosage: 330 MILLIGRAM (WEIGHT: 66KG)
     Route: 041
     Dates: start: 20181202, end: 20181202
  4. AZATHIOPRINE. [Concomitant]
     Active Substance: AZATHIOPRINE
     Dosage: UNK
     Route: 048
     Dates: start: 20161205

REACTIONS (3)
  - Pruritus [Recovered/Resolved]
  - Product use issue [Unknown]
  - Enteritis infectious [Recovered/Resolved]

NARRATIVE: CASE EVENT DATE: 20190202
